FAERS Safety Report 6026756-2 (Version None)
Quarter: 2009Q1

REPORT INFORMATION
  Report Type: 
  Country: None (occurrence: None)
  Receive Date: 20090105
  Receipt Date: 20081222
  Transmission Date: 20090719
  Serious: Yes (Death)
  Sender: FDA-Public Use
  Company Number: JP-JNJFOC-20080904380

PATIENT
  Sex: Female

DRUGS (11)
  1. FINIBAX [Suspect]
     Route: 041
  2. FINIBAX [Suspect]
     Indication: PERITONITIS
     Route: 041
  3. VANCOMYCIN [Suspect]
     Route: 041
  4. VANCOMYCIN [Suspect]
     Indication: STAPHYLOCOCCAL INFECTION
     Route: 041
  5. PRODIF [Suspect]
     Route: 042
  6. PRODIF [Suspect]
     Indication: SEPSIS
     Route: 042
  7. REMINARON [Concomitant]
     Indication: PERITONITIS
     Route: 042
  8. DIPRIVAN [Concomitant]
     Indication: SEDATION
     Route: 042
  9. BISOLVAN [Concomitant]
     Indication: SPUTUM ABNORMAL
     Route: 042
  10. CIPROXAN [Concomitant]
     Indication: SEPSIS
     Route: 065
  11. ZYVOX [Concomitant]
     Indication: SEPSIS
     Route: 065

REACTIONS (2)
  - SEPSIS [None]
  - TOXIC EPIDERMAL NECROLYSIS [None]
